FAERS Safety Report 4489650-4 (Version None)
Quarter: 2004Q4

REPORT INFORMATION
  Report Type: 
  Country: None (occurrence: None)
  Receive Date: 20041101
  Receipt Date: 20041022
  Transmission Date: 20050328
  Serious: Yes (Hospitalization)
  Sender: FDA-Public Use
  Company Number: PHBS2004JP14231

PATIENT
  Age: 68 Year
  Sex: Male

DRUGS (1)
  1. TEGRETOL [Suspect]
     Indication: EPILEPSY
     Route: 048
     Dates: end: 20040906

REACTIONS (6)
  - BLOOD PRESSURE INCREASED [None]
  - BRADYCARDIA [None]
  - HAEMODIALYSIS [None]
  - HEART RATE INCREASED [None]
  - RENAL IMPAIRMENT [None]
  - SINUS ARREST [None]
